FAERS Safety Report 7153053-4 (Version None)
Quarter: 2010Q4

REPORT INFORMATION
  Report Type: 
  Country: None (occurrence: None)
  Receive Date: 20101209
  Receipt Date: 20101209
  Transmission Date: 20110411
  Serious: No
  Sender: FDA-Public Use
  Company Number: None

PATIENT
  Sex: Female
  Weight: 117.9352 kg

DRUGS (1)
  1. PROPOXYPHENE HCL [Suspect]
     Indication: ARTHRALGIA
     Dosage: 1 + 2 TABLES 4 TO 6 HOURS BY MOUTH
     Route: 048

REACTIONS (2)
  - DIZZINESS [None]
  - HEART RATE INCREASED [None]
